FAERS Safety Report 7812602-0 (Version None)
Quarter: 2011Q4

REPORT INFORMATION
  Report Type: 
  Country: None (occurrence: None)
  Receive Date: 20111013
  Receipt Date: 20110929
  Transmission Date: 20120403
  Serious: Yes (Other)
  Sender: FDA-Public Use
  Company Number: US-WATSON-2011-14510

PATIENT
  Sex: Female
  Weight: 68.481 kg

DRUGS (5)
  1. PREDNISONE [Suspect]
     Dosage: ^TAPERING DOSES SINCE 4/10^
     Route: 048
     Dates: start: 20100401
  2. PREDNISONE [Suspect]
     Indication: TEMPORAL ARTERITIS
     Dosage: 5 MG, DAILY
     Route: 048
     Dates: start: 20110101
  3. NAMENDA [Concomitant]
     Indication: PRODUCT USED FOR UNKNOWN INDICATION
     Dosage: UNK
     Route: 065
  4. PREDNISONE [Suspect]
     Indication: LEUKAEMIA
     Dosage: 60 MG, DAILY (INITIALLY 60 MG DAILY AND WEANED TO 5 MG CURRENTLY)
     Route: 048
     Dates: start: 20100901, end: 20110101
  5. ACIPHEX [Concomitant]
     Indication: PRODUCT USED FOR UNKNOWN INDICATION
     Dosage: PRN
     Route: 048

REACTIONS (7)
  - AMNESIA [None]
  - MENTAL STATUS CHANGES [None]
  - DEMENTIA [None]
  - CONFUSIONAL STATE [None]
  - DISORIENTATION [None]
  - LEARNING DISORDER [None]
  - MEMORY IMPAIRMENT [None]
